FAERS Safety Report 16883254 (Version 1)
Quarter: 2019Q4

REPORT INFORMATION
  Report Type: Spontaneous
  Country: US (occurrence: US)
  Receive Date: 20191004
  Receipt Date: 20191004
  Transmission Date: 20200122
  Serious: No
  Sender: FDA-Public Use
  Company Number: US-SA-2019SA273071

PATIENT
  Sex: Female

DRUGS (10)
  1. LEVOTHYROXIN [Concomitant]
     Active Substance: LEVOTHYROXINE
  2. KEVZARA [Suspect]
     Active Substance: SARILUMAB
     Dosage: 200 MG, QOW
     Route: 058
  3. ROSUVASTATIN CALCIUM. [Concomitant]
     Active Substance: ROSUVASTATIN CALCIUM
  4. METHOTREXATE. [Concomitant]
     Active Substance: METHOTREXATE
  5. LEUCOVORINE [Concomitant]
     Active Substance: LEUCOVORIN
  6. CIPROFLOXACIN. [Concomitant]
     Active Substance: CIPROFLOXACIN
  7. FLUNISOLIDE. [Concomitant]
     Active Substance: FLUNISOLIDE
  8. METOPROLOL. [Concomitant]
     Active Substance: METOPROLOL
  9. BREO ELLIPTA [Concomitant]
     Active Substance: FLUTICASONE FUROATE\VILANTEROL TRIFENATATE
  10. LINZESS [Concomitant]
     Active Substance: LINACLOTIDE

REACTIONS (4)
  - Injection site erythema [Unknown]
  - Injection site swelling [Unknown]
  - Injection site discolouration [Unknown]
  - Injection site pruritus [Unknown]
